FAERS Safety Report 5374692-7 (Version None)
Quarter: 2007Q2

REPORT INFORMATION
  Report Type: 
  Country: None (occurrence: None)
  Receive Date: 20070629
  Receipt Date: 20070625
  Transmission Date: 20071010
  Serious: Yes (Death, Hospitalization)
  Sender: FDA-Public Use
  Company Number: US-AMGEN-US229788

PATIENT
  Sex: Male
  Weight: 128.9 kg

DRUGS (15)
  1. VECTIBIX [Suspect]
     Indication: COLORECTAL CANCER
     Route: 042
     Dates: start: 20070515, end: 20070515
  2. LASIX [Concomitant]
     Route: 048
     Dates: start: 20000101
  3. ALLOPURINOL [Concomitant]
     Route: 065
  4. COUMADIN [Concomitant]
     Route: 065
     Dates: start: 20000101
  5. DILTIAZEM [Concomitant]
     Route: 065
     Dates: start: 20000101
  6. SEREVENT [Concomitant]
     Route: 055
     Dates: start: 20040101
  7. ALBUTEROL [Concomitant]
     Route: 055
     Dates: start: 20000101
  8. IMODIUM [Concomitant]
     Route: 065
  9. CLARITIN [Concomitant]
     Route: 065
  10. DECADRON [Concomitant]
     Route: 065
     Dates: start: 20070313
  11. OXYGEN [Concomitant]
     Route: 065
  12. ASPIRIN [Concomitant]
     Route: 048
  13. VITAMIN CAP [Concomitant]
     Route: 048
  14. LANOXIN [Concomitant]
     Route: 048
  15. LISINOPRIL [Concomitant]
     Route: 048

REACTIONS (4)
  - ATRIAL FIBRILLATION [None]
  - CHRONIC OBSTRUCTIVE PULMONARY DISEASE [None]
  - DUODENAL ULCER [None]
  - GASTROINTESTINAL HAEMORRHAGE [None]
